FAERS Safety Report 8810099 (Version 1)
Quarter: 2012Q4

REPORT INFORMATION
  Report Type: 
  Country: US (occurrence: US)
  Receive Date: 20120926
  Receipt Date: 20120926
  Transmission Date: 20130627
  Serious: Yes (Hospitalization, Other)
  Sender: FDA-Public Use
  Company Number: US-ELI_LILLY_AND_COMPANY-US201209006449

PATIENT
  Sex: Male

DRUGS (3)
  1. EFFIENT [Suspect]
     Indication: STENT PLACEMENT
     Dosage: 60 mg, single
     Dates: start: 20120918, end: 20120918
  2. EFFIENT [Suspect]
     Dosage: 10 mg, qd
     Dates: start: 20120919, end: 20120920
  3. ASPIRIN [Concomitant]
     Dosage: 325 mg, UNK
     Dates: start: 20120918

REACTIONS (2)
  - Gastrointestinal haemorrhage [Unknown]
  - Oesophagitis [Unknown]
